FAERS Safety Report 11373054 (Version 1)
Quarter: 2015Q3

REPORT INFORMATION
  Report Type: Spontaneous
  Country: US (occurrence: US)
  Receive Date: 20150811
  Receipt Date: 20150811
  Transmission Date: 20151125
  Serious: No
  Sender: FDA-Public Use
  Company Number: US-ELI_LILLY_AND_COMPANY-US201204009874

PATIENT
  Age: 66 Year
  Sex: Female
  Weight: 89.9 kg

DRUGS (4)
  1. BUMEX [Concomitant]
     Active Substance: BUMETANIDE
     Dosage: 0.5 MG, QD
  2. TYVASO [Concomitant]
     Active Substance: TREPROSTINIL
     Indication: PULMONARY ARTERIAL HYPERTENSION
     Dosage: 6 DF, QID
     Route: 055
     Dates: start: 20120322
  3. ADCIRCA [Suspect]
     Active Substance: TADALAFIL
  4. BUMEX [Concomitant]
     Active Substance: BUMETANIDE
     Dosage: 2 MG, QD
     Dates: start: 20120324

REACTIONS (2)
  - Gait disturbance [Not Recovered/Not Resolved]
  - Joint swelling [Not Recovered/Not Resolved]

NARRATIVE: CASE EVENT DATE: 20120325
